FAERS Safety Report 9064944 (Version 3)
Quarter: 2013Q2

REPORT INFORMATION
  Report Type: Spontaneous
  Country: GB (occurrence: GB)
  Receive Date: 20130128
  Receipt Date: 20130424
  Transmission Date: 20140414
  Serious: Yes (Hospitalization, Other)
  Sender: FDA-Public Use
  Company Number: PHFR2013GB000825

PATIENT
  Age: 54 Year
  Sex: Male

DRUGS (1)
  1. CLOZARIL [Suspect]
     Indication: SCHIZOPHRENIA
     Dosage: 800 MG, UNK
     Dates: start: 1999

REACTIONS (4)
  - Hip fracture [Unknown]
  - Femoral neck fracture [Recovered/Resolved]
  - White blood cell count increased [Unknown]
  - Neutrophil count increased [Recovered/Resolved]
